FAERS Safety Report 8552399-2 (Version None)
Quarter: 2012Q3

REPORT INFORMATION
  Report Type: 
  Country: None (occurrence: None)
  Receive Date: 20120731
  Receipt Date: 20120718
  Transmission Date: 20120928
  Serious: Yes (Other)
  Sender: FDA-Public Use
  Company Number: NO-ACCORD-014195

PATIENT
  Age: 24 Year
  Sex: Male

DRUGS (8)
  1. DOXORUBICIN HYDROCHLORIDE [Suspect]
     Dosage: 25 (STANDARD) OR 35 (ESCALATED) MG/M2 D1 Q22D
     Route: 042
  2. PREDNISOLONE [Suspect]
     Dosage: 40 MG/M2 D1-14 Q22D
     Route: 048
  3. SULFAMETHOXAZOLE AND TRIMETHOPRIM [Concomitant]
     Route: 065
  4. PROCARBAZINE HYDROCHLORIDE [Suspect]
     Dosage: 100 MG/M2 D1-7 Q22D
     Route: 048
  5. VINCRISTINE [Suspect]
     Dosage: 1.4 MG/M2 D8 Q22D
     Route: 042
  6. CYCLOPHOSPHAMIDE [Suspect]
     Dosage: 650 (STANDARD) OR 1250 (ESCALATED) MG/M2 D1 Q22D
     Route: 042
  7. ETOPOSIDE [Suspect]
     Dosage: 100 (STANDARD) OR 200 (ESCALATED) MG/M2 D1-3 Q22D
     Route: 042
  8. BLEOMYCIN SULFATE [Suspect]
     Dosage: 10 000IU D8 Q22D
     Route: 042

REACTIONS (2)
  - OSTEONECROSIS [None]
  - OFF LABEL USE [None]
